FAERS Safety Report 9344693 (Version 1)
Quarter: 2013Q2

REPORT INFORMATION
  Report Type: Spontaneous
  Country: US (occurrence: None)
  Receive Date: 20130611
  Receipt Date: 20130611
  Transmission Date: 20140414
  Serious: Yes (Other)
  Sender: FDA-Public Use
  Company Number: None

PATIENT
  Age: 31 Year
  Sex: Female
  Weight: 97.52 kg

DRUGS (1)
  1. VENLAFAXINE [Suspect]
     Indication: BIPOLAR DISORDER
     Dosage: 1   1/DAY
     Route: 048
     Dates: start: 20130607, end: 20130610

REACTIONS (6)
  - Drug withdrawal syndrome [None]
  - Vision blurred [None]
  - Migraine [None]
  - Nausea [None]
  - Mood swings [None]
  - Product substitution issue [None]
